FAERS Safety Report 4677507-5 (Version None)
Quarter: 2005Q2

REPORT INFORMATION
  Report Type: 
  Country: None (occurrence: None)
  Receive Date: 20050527
  Receipt Date: 20050527
  Transmission Date: 20051028
  Serious: No
  Sender: FDA-Public Use
  Company Number: None

PATIENT
  Age: 48 Year
  Sex: Male

DRUGS (2)
  1. VISIPAQUE 320 [Suspect]
     Indication: SCAN WITH CONTRAST
     Dosage: 652MG/ML   INTRAVENOUS
     Route: 042
     Dates: start: 20050329, end: 20050329
  2. ALLOPURINOL [Concomitant]

REACTIONS (2)
  - PRURITUS [None]
  - URTICARIA [None]
